FAERS Safety Report 19725915 (Version 1)
Quarter: 2021Q3

REPORT INFORMATION
  Report Type: Spontaneous
  Country: US (occurrence: US)
  Receive Date: 20210819
  Receipt Date: 20210819
  Transmission Date: 20211014
  Serious: No
  Sender: FDA-Public Use
  Company Number: US-MANNKIND CORPORATION-2021MK000076

PATIENT
  Age: 50 Year
  Sex: Male
  Weight: 91.71 kg

DRUGS (13)
  1. AFREZZA [Suspect]
     Active Substance: INSULIN HUMAN
     Dates: start: 202102, end: 20210520
  2. AFREZZA [Suspect]
     Active Substance: INSULIN HUMAN
     Dates: start: 20210523
  3. LEVOTHYROXINE. [Concomitant]
     Active Substance: LEVOTHYROXINE
     Indication: HYPOTHYROIDISM
     Route: 048
  4. LIOTHYRONINE [Concomitant]
     Active Substance: LIOTHYRONINE
     Indication: HYPOTHYROIDISM
     Route: 048
  5. FENOFIBRATE. [Concomitant]
     Active Substance: FENOFIBRATE
     Indication: PRODUCT USED FOR UNKNOWN INDICATION
     Route: 048
  6. AFREZZA [Suspect]
     Active Substance: INSULIN HUMAN
     Dates: start: 202102, end: 20210520
  7. ENALAPRIL [Concomitant]
     Active Substance: ENALAPRIL
     Indication: CHRONIC KIDNEY DISEASE
     Route: 048
     Dates: start: 1996
  8. AFREZZA [Suspect]
     Active Substance: INSULIN HUMAN
     Indication: TYPE 1 DIABETES MELLITUS
     Dates: start: 202102, end: 20210520
  9. AFREZZA [Suspect]
     Active Substance: INSULIN HUMAN
     Dates: start: 20210523
  10. AFREZZA [Suspect]
     Active Substance: INSULIN HUMAN
     Dates: start: 20210523
  11. TRESIBA [Concomitant]
     Active Substance: INSULIN DEGLUDEC
     Indication: TYPE 1 DIABETES MELLITUS
  12. ATORVASTATIN [Concomitant]
     Active Substance: ATORVASTATIN
     Indication: BLOOD CHOLESTEROL ABNORMAL
     Route: 048
  13. MULTIVITAMIN [Concomitant]
     Active Substance: VITAMINS
     Indication: VITAMIN SUPPLEMENTATION
     Route: 048

REACTIONS (3)
  - Blood glucose increased [Recovered/Resolved]
  - Sinusitis [Not Recovered/Not Resolved]
  - Cough [Recovered/Resolved]

NARRATIVE: CASE EVENT DATE: 202102
